FAERS Safety Report 9799475 (Version 1)
Quarter: 2014Q1

REPORT INFORMATION
  Report Type: Spontaneous
  Country: US (occurrence: None)
  Receive Date: 20140103
  Receipt Date: 20140103
  Transmission Date: 20141002
  Serious: Yes (Hospitalization, Other)
  Sender: FDA-Public Use
  Company Number: None

PATIENT
  Age: 80 Year
  Sex: Male

DRUGS (7)
  1. ZYTIGA 250MG JANNSEN [Suspect]
     Indication: PROSTATE CANCER
     Route: 048
  2. PREDNISONE [Concomitant]
  3. ASPIRIN [Concomitant]
  4. CALCIUM WITH VIT. D [Concomitant]
  5. HYDROCHOROTHIAZIDE [Concomitant]
  6. METFORMIN [Concomitant]
  7. MULVITAMIN [Concomitant]

REACTIONS (3)
  - Muscular weakness [None]
  - Fall [None]
  - Weight decreased [None]
